FAERS Safety Report 19382763 (Version 1)
Quarter: 2021Q2

REPORT INFORMATION
  Report Type: Spontaneous
  Country: US (occurrence: US)
  Receive Date: 20210607
  Receipt Date: 20210607
  Transmission Date: 20210717
  Serious: Yes (Other)
  Sender: FDA-Public Use
  Company Number: US-PFIZER INC-2021600430

PATIENT
  Age: 53 Year
  Sex: Male
  Weight: 74.83 kg

DRUGS (3)
  1. ENTYVIO [Concomitant]
     Active Substance: VEDOLIZUMAB
     Indication: COLITIS ULCERATIVE
     Dosage: 50 MG, 2X/DAY
  2. ASACOL [Concomitant]
     Active Substance: MESALAMINE
     Indication: COLITIS ULCERATIVE
  3. SULFASALAZINE. [Suspect]
     Active Substance: SULFASALAZINE
     Indication: COLITIS ULCERATIVE
     Dosage: 1500 MG, 3X/DAY (500 MG 3 TABLETS AT EACH MEAL 3 TIMES DAILY. TOTAL 9 DAILY)
     Route: 048

REACTIONS (1)
  - Drug dependence [Unknown]
